FAERS Safety Report 4681894-1 (Version None)
Quarter: 2005Q2

REPORT INFORMATION
  Report Type: 
  Country: None (occurrence: None)
  Receive Date: 20050602
  Receipt Date: 20050524
  Transmission Date: 20051028
  Serious: Yes (Other)
  Sender: FDA-Public Use
  Company Number: 2005075795

PATIENT
  Sex: Female

DRUGS (2)
  1. UNASYN S (SULBACTAM, AMPICLLIN) [Suspect]
     Indication: PNEUMONIA
     Dosage: INTRAVENOUS
     Route: 042
     Dates: start: 20050101, end: 20050101
  2. XYLOCAINE [Suspect]
     Indication: ILL-DEFINED DISORDER

REACTIONS (7)
  - ALANINE AMINOTRANSFERASE INCREASED [None]
  - ASPARTATE AMINOTRANSFERASE INCREASED [None]
  - DRUG INEFFECTIVE [None]
  - PNEUMONIA [None]
  - POSTOPERATIVE FEVER [None]
  - STEVENS-JOHNSON SYNDROME [None]
  - URINARY TRACT INFECTION [None]
